FAERS Safety Report 8919111 (Version 5)
Quarter: 2013Q4

REPORT INFORMATION
  Report Type: Report from Study
  Country: JP (occurrence: JP)
  Receive Date: 20121121
  Receipt Date: 20131119
  Transmission Date: 20140711
  Serious: Yes (Hospitalization, Other)
  Sender: FDA-Public Use
  Company Number: JP-VERTEX PHARMACEUTICAL INC.-2012-024878

PATIENT
  Age: 62 Year
  Sex: Female

DRUGS (11)
  1. VX-950 (TELAPREVIR) [Suspect]
     Indication: CHRONIC HEPATITIS C
     Dosage: 1500 MG, QD
     Route: 048
     Dates: start: 20120924, end: 20121124
  2. RIBAVIRIN [Suspect]
     Indication: CHRONIC HEPATITIS C
     Dosage: 600 MG, QD
     Route: 048
     Dates: start: 20120924, end: 20121008
  3. RIBAVIRIN [Suspect]
     Dosage: 400 MG, QD
     Route: 048
     Dates: start: 20121009, end: 20121015
  4. RIBAVIRIN [Suspect]
     Dosage: 600 MG, QD
     Route: 048
     Dates: start: 20121016, end: 20121028
  5. RIBAVIRIN [Suspect]
     Dosage: 400 MG, QD
     Route: 048
     Dates: start: 20121029, end: 20121111
  6. RIBAVIRIN [Suspect]
     Dosage: 200 MG, QD
     Route: 048
     Dates: start: 20121112, end: 20121124
  7. PEGINTERFERON ALFA-2B [Suspect]
     Indication: CHRONIC HEPATITIS C
     Dosage: 1.6 ?G/KG, WEEKLY
     Route: 058
     Dates: start: 20120924, end: 20121021
  8. PEGINTERFERON ALFA-2B [Suspect]
     Dosage: 1.46 ?G/KG, WEEKLY
     Route: 058
     Dates: start: 20121022, end: 20121119
  9. RINDERON [Suspect]
     Indication: ADVERSE EVENT
     Dosage: 3 MG, QD
     Route: 048
     Dates: start: 20121127
  10. RINDERON [Suspect]
     Dosage: 3 MG, QD
     Route: 048
     Dates: start: 20121127, end: 20121202
  11. ALLELOCK [Concomitant]
     Dosage: 5 MG, QD
     Route: 048
     Dates: start: 20121029, end: 20121120

REACTIONS (3)
  - Pneumonia [Recovered/Resolved]
  - Erythema multiforme [Recovered/Resolved]
  - Anaemia [Not Recovered/Not Resolved]
